FAERS Safety Report 6942831-X (Version None)
Quarter: 2010Q3

REPORT INFORMATION
  Report Type: 
  Country: None (occurrence: None)
  Receive Date: 20100824
  Receipt Date: 20100824
  Transmission Date: 20110219
  Serious: Yes (Life-Threatening, Other)
  Sender: FDA-Public Use
  Company Number: None

PATIENT
  Sex: Female
  Weight: 72.5755 kg

DRUGS (2)
  1. CODEINE PHOSPHATE AND ACETAMINOPHEN [Suspect]
     Indication: PAIN
     Dosage: 300/30 MG AS NEEDED ORAL
     Route: 048
     Dates: start: 20100803, end: 20100805
  2. ASPIRIN [Concomitant]

REACTIONS (2)
  - ANAPHYLACTIC REACTION [None]
  - INSOMNIA [None]
